FAERS Safety Report 20071174 (Version 2)
Quarter: 2022Q1

REPORT INFORMATION
  Report Type: Spontaneous
  Country: CA (occurrence: CA)
  Receive Date: 20211115
  Receipt Date: 20220301
  Transmission Date: 20220423
  Serious: Yes (Other)
  Sender: FDA-Public Use
  Company Number: CA-CIPHER-2021-CA-001960

PATIENT
  Sex: Male

DRUGS (12)
  1. TRAMADOL HYDROCHLORIDE [Suspect]
     Active Substance: TRAMADOL HYDROCHLORIDE
     Indication: Product used for unknown indication
     Route: 065
  2. PREDNISONE [Suspect]
     Active Substance: PREDNISONE
  3. RITUXIMAB [Suspect]
     Active Substance: RITUXIMAB
  4. TACROLIMUS [Suspect]
     Active Substance: TACROLIMUS
  5. ACETAMINOPHEN [Suspect]
     Active Substance: ACETAMINOPHEN
  6. CANNABIS SATIVA FLOWERING TOP [Suspect]
     Active Substance: CANNABIS SATIVA FLOWERING TOP
  7. CELLCEPT [Suspect]
     Active Substance: MYCOPHENOLATE MOFETIL
  8. DIPHENHYDRAMINE [Suspect]
     Active Substance: DIPHENHYDRAMINE
  9. FINASTERIDE [Suspect]
     Active Substance: FINASTERIDE
  10. IRBESARTAN [Suspect]
     Active Substance: IRBESARTAN
  11. MESTINON [Suspect]
     Active Substance: PYRIDOSTIGMINE BROMIDE
  12. METHYLPREDNISOLONE [Suspect]
     Active Substance: METHYLPREDNISOLONE

REACTIONS (12)
  - Skin irritation [Unknown]
  - Swelling face [Unknown]
  - Thinking abnormal [Unknown]
  - Throat tightness [Unknown]
  - Aggression [Unknown]
  - Anaphylactic reaction [Unknown]
  - Anger [Unknown]
  - Depression [Unknown]
  - Diplopia [Unknown]
  - Lip swelling [Unknown]
  - Off label use [Unknown]
  - Psychotic disorder [Unknown]
